FAERS Safety Report 4752489-6 (Version None)
Quarter: 2005Q3

REPORT INFORMATION
  Report Type: 
  Country: None (occurrence: None)
  Receive Date: 20050825
  Receipt Date: 20050815
  Transmission Date: 20060218
  Serious: Yes (Death, Hospitalization)
  Sender: FDA-Public Use
  Company Number: US-ROCHE-414449

PATIENT
  Age: 52 Year
  Sex: Female

DRUGS (4)
  1. PEGASYS [Suspect]
     Dosage: ROUTE REPORTED AS INJECTABLE.
     Route: 050
     Dates: start: 20041202
  2. LIPITOR [Concomitant]
  3. ANTIHYPERTENSIVE NOS [Concomitant]
  4. PROZAC [Concomitant]
     Indication: DEPRESSION

REACTIONS (3)
  - PNEUMONIA [None]
  - TOXIC SHOCK SYNDROME [None]
  - WHITE BLOOD CELL COUNT DECREASED [None]
